FAERS Safety Report 4453571-3 (Version None)
Quarter: 2004Q3

REPORT INFORMATION
  Report Type: 
  Country: None (occurrence: None)
  Receive Date: 20040920
  Receipt Date: 20040901
  Transmission Date: 20050211
  Serious: Yes (Hospitalization)
  Sender: FDA-Public Use
  Company Number: PHBS2004JP11653

PATIENT
  Age: 67 Year
  Sex: Male

DRUGS (1)
  1. VOLTAREN [Suspect]
     Indication: SCIATICA
     Dosage: 50 MG/DAY
     Route: 054
     Dates: start: 20001201, end: 20001201

REACTIONS (8)
  - ANOREXIA [None]
  - BLOOD CREATININE INCREASED [None]
  - FACE OEDEMA [None]
  - GLOMERULONEPHRITIS MINIMAL LESION [None]
  - NEPHROTIC SYNDROME [None]
  - PROTEIN TOTAL INCREASED [None]
  - PROTEIN URINE PRESENT [None]
  - RENAL FAILURE ACUTE [None]
